FAERS Safety Report 20786640 (Version 1)
Quarter: 2022Q2

REPORT INFORMATION
  Report Type: Spontaneous
  Country: JP (occurrence: JP)
  Receive Date: 20220505
  Receipt Date: 20220505
  Transmission Date: 20220721
  Serious: Yes (Other)
  Sender: FDA-Public Use
  Company Number: JP-SUN PHARMACEUTICAL INDUSTRIES LTD-2022RR-335237

PATIENT
  Sex: Male

DRUGS (15)
  1. PAROXETINE [Suspect]
     Active Substance: PAROXETINE
     Indication: Persistent depressive disorder
     Dosage: 10 MILLIGRAM, DAILY
     Route: 002
  2. PAROXETINE [Suspect]
     Active Substance: PAROXETINE
     Indication: Dissociative disorder
  3. ZOLPIDEM [Suspect]
     Active Substance: ZOLPIDEM TARTRATE
     Indication: Dissociative disorder
     Dosage: 5 MILLIGRAM, DAILY
     Route: 064
  4. ZOLPIDEM [Suspect]
     Active Substance: ZOLPIDEM TARTRATE
     Indication: Persistent depressive disorder
  5. ALPRAZOLAM [Suspect]
     Active Substance: ALPRAZOLAM
     Indication: Persistent depressive disorder
     Dosage: 0.4 MILLIGRAM, DAILY
     Route: 002
  6. ALPRAZOLAM [Suspect]
     Active Substance: ALPRAZOLAM
     Indication: Dissociative disorder
  7. MIRTAZAPINE [Suspect]
     Active Substance: MIRTAZAPINE
     Indication: Dissociative disorder
     Dosage: 15 MILLIGRAM, DAILY
     Route: 064
  8. MIRTAZAPINE [Suspect]
     Active Substance: MIRTAZAPINE
     Indication: Persistent depressive disorder
  9. LORAZEPAM [Suspect]
     Active Substance: LORAZEPAM
     Indication: Anxiety
     Dosage: 0.25 MILLIGRAM, DAILY
     Route: 002
  10. BROTIZOLAM [Suspect]
     Active Substance: BROTIZOLAM
     Indication: Dissociative disorder
     Dosage: 0.25 MILLIGRAM, DAILY
     Route: 064
  11. BROTIZOLAM [Suspect]
     Active Substance: BROTIZOLAM
     Indication: Persistent depressive disorder
  12. PERICIAZINE [Suspect]
     Active Substance: PERICIAZINE
     Indication: Dissociative disorder
     Dosage: 10 MILLIGRAM, DAILY
     Route: 064
  13. PERICIAZINE [Suspect]
     Active Substance: PERICIAZINE
     Indication: Persistent depressive disorder
  14. SULPIRIDE [Suspect]
     Active Substance: SULPIRIDE
     Indication: Dissociative disorder
     Dosage: 100 MILLIGRAM, DAILY
     Route: 064
  15. SULPIRIDE [Suspect]
     Active Substance: SULPIRIDE
     Indication: Persistent depressive disorder

REACTIONS (7)
  - Foetal exposure during pregnancy [Unknown]
  - Respiratory distress [Unknown]
  - Oxygen saturation decreased [Unknown]
  - Bradycardia [Unknown]
  - Tachypnoea [Unknown]
  - Vomiting [Unknown]
  - Exposure via breast milk [Unknown]
